FAERS Safety Report 14779595 (Version 5)
Quarter: 2019Q2

REPORT INFORMATION
  Report Type: Spontaneous
  Country: US (occurrence: US)
  Receive Date: 20180419
  Receipt Date: 20190408
  Transmission Date: 20190711
  Serious: Yes (Other)
  Sender: FDA-Public Use
  Company Number: US-SHIRE-US201814673

PATIENT
  Age: 6 Year
  Sex: Male
  Weight: 40 kg

DRUGS (2)
  1. ADYNOVATE [Suspect]
     Active Substance: ANTIHEMOPHILIC FACTOR, HUMAN RECOMBINANT
     Indication: PRODUCT USED FOR UNKNOWN INDICATION
     Dosage: 1156 INTERNATIONAL UNIT, 2X A WEEK
     Route: 050
     Dates: start: 20170214, end: 20170511
  2. ADVATE [Suspect]
     Active Substance: ANTIHEMOPHILIC FACTOR, HUMAN RECOMBINANT
     Indication: FACTOR VIII DEFICIENCY
     Dosage: 1545 INTERNATIONAL UNIT; EVERY OTHER DAY
     Route: 042
     Dates: start: 20170516

REACTIONS (2)
  - Factor VIII inhibition [Not Recovered/Not Resolved]
  - Haemorrhage [Unknown]

NARRATIVE: CASE EVENT DATE: 20170509
